FAERS Safety Report 9060780 (Version 3)
Quarter: 2013Q3

REPORT INFORMATION
  Report Type: Report from Study
  Country: TR (occurrence: TR)
  Receive Date: 20130204
  Receipt Date: 20130903
  Transmission Date: 20140515
  Serious: Yes (Hospitalization, Other)
  Sender: FDA-Public Use
  Company Number: TR-BAYER-2013-010115

PATIENT
  Age: 30 Year
  Sex: Male
  Weight: 62 kg

DRUGS (1)
  1. BETAFERON [Suspect]
     Indication: MULTIPLE SCLEROSIS
     Dosage: QOD
     Route: 058
     Dates: start: 20121001

REACTIONS (7)
  - Pain in extremity [Recovering/Resolving]
  - Bone pain [Recovering/Resolving]
  - Paraesthesia [Recovering/Resolving]
  - Muscle contractions involuntary [Recovering/Resolving]
  - Bone disorder [Recovering/Resolving]
  - Multiple sclerosis [None]
  - Muscular weakness [Not Recovered/Not Resolved]
